FAERS Safety Report 5429317-9 (Version None)
Quarter: 2007Q3

REPORT INFORMATION
  Report Type: 
  Country: None (occurrence: None)
  Receive Date: 20070829
  Receipt Date: 20070821
  Transmission Date: 20080115
  Serious: Yes (Other)
  Sender: FDA-Public Use
  Company Number: PHBS2007US14174

PATIENT

DRUGS (5)
  1. METOPROLOL SUCCINATE [Suspect]
     Route: 064
  2. DIGOXIN [Suspect]
     Route: 064
  3. HYDRALAZIN [Suspect]
     Route: 064
  4. NITRATES [Suspect]
     Route: 064
  5. IRON SUPPLEMENTS [Suspect]
     Route: 064

REACTIONS (2)
  - DRUG EXPOSURE DURING PREGNANCY [None]
  - PREMATURE BABY [None]
